FAERS Safety Report 5122078-2 (Version None)
Quarter: 2006Q4

REPORT INFORMATION
  Report Type: 
  Country: None (occurrence: None)
  Receive Date: 20061004
  Receipt Date: 20061004
  Transmission Date: 20070319
  Serious: Yes (Other)
  Sender: FDA-Public Use
  Company Number: None

PATIENT
  Sex: Female
  Weight: 48.9885 kg

DRUGS (1)
  1. LEVAQUIN [Suspect]
     Indication: HAEMOPHILUS INFECTION
     Dosage: 500 MG 1 TAB DAILY MOUTH
     Dates: start: 20060824, end: 20060825

REACTIONS (3)
  - ASTHENIA [None]
  - DIZZINESS [None]
  - TENDONITIS [None]
